FAERS Safety Report 6007512-8 (Version None)
Quarter: 2008Q4

REPORT INFORMATION
  Report Type: 
  Country: None (occurrence: None)
  Receive Date: 20081217
  Receipt Date: 20080501
  Transmission Date: 20090506
  Serious: No
  Sender: FDA-Public Use
  Company Number: US-ASTRAZENECA-2008UW08991

PATIENT
  Age: 62 Year
  Sex: Female
  Weight: 95.3 kg

DRUGS (4)
  1. CRESTOR [Suspect]
     Indication: BLOOD CHOLESTEROL INCREASED
     Route: 048
  2. DEPAKOTE [Concomitant]
     Indication: PAIN
  3. ZOLOFT [Concomitant]
  4. TRIGLYCERIDE [Concomitant]

REACTIONS (3)
  - ILL-DEFINED DISORDER [None]
  - INSOMNIA [None]
  - VERTIGO [None]
